FAERS Safety Report 25012802 (Version 3)
Quarter: 2025Q1

REPORT INFORMATION
  Report Type: Spontaneous
  Country: ZA (occurrence: ZA)
  Receive Date: 20250226
  Receipt Date: 20250315
  Transmission Date: 20250408
  Serious: Yes (Life-Threatening, Hospitalization, Other)
  Sender: ACCORD
  Company Number: ZA-Accord-471114

PATIENT
  Sex: Female

DRUGS (3)
  1. AMLODIPINE [Suspect]
     Active Substance: AMLODIPINE BESYLATE
     Route: 048
  2. ACETAMINOPHEN [Concomitant]
     Active Substance: ACETAMINOPHEN
  3. ASPIRIN [Concomitant]
     Active Substance: ASPIRIN

REACTIONS (7)
  - Intentional overdose [Unknown]
  - Suicide attempt [Unknown]
  - Non-cardiogenic pulmonary oedema [Recovered/Resolved]
  - Respiratory distress [Recovered/Resolved]
  - Hypocalcaemia [Recovered/Resolved]
  - Metabolic acidosis [Recovered/Resolved]
  - Distributive shock [Recovered/Resolved]
